FAERS Safety Report 4533461-8 (Version None)
Quarter: 2004Q4

REPORT INFORMATION
  Report Type: 
  Country: None (occurrence: None)
  Receive Date: 20041210
  Receipt Date: 20040212
  Transmission Date: 20050328
  Serious: Yes (Hospitalization)
  Sender: FDA-Public Use
  Company Number: RS004232-USA

PATIENT
  Age: 63 Year
  Sex: Female
  Weight: 81.6475 kg

DRUGS (3)
  1. ACIPHEX [Suspect]
     Indication: GASTROOESOPHAGEAL REFLUX DISEASE
     Dosage: 40 MG, 2 IN 1 D, ORAL
     Route: 048
  2. ATIVAN [Concomitant]
  3. PROTONIX (PANTROPRAZOLE) [Concomitant]

REACTIONS (8)
  - ABDOMINAL PAIN [None]
  - ANXIETY [None]
  - DYSPEPSIA [None]
  - ELECTROCARDIOGRAM T WAVE ABNORMAL [None]
  - HEART RATE INCREASED [None]
  - SLEEP APNOEA SYNDROME [None]
  - SWELLING FACE [None]
  - TREMOR [None]
